FAERS Safety Report 24393926 (Version 1)
Quarter: 2024Q4

REPORT INFORMATION
  Report Type: Spontaneous
  Country: US (occurrence: US)
  Receive Date: 20241003
  Receipt Date: 20241003
  Transmission Date: 20250115
  Serious: No
  Sender: BIOGEN
  Company Number: US-BIOGEN-2024BI01262564

PATIENT
  Age: 22 Year
  Sex: Male

DRUGS (1)
  1. SKYCLARYS [Suspect]
     Active Substance: OMAVELOXOLONE
     Indication: Friedreich^s ataxia
     Route: 050
     Dates: start: 20231021

REACTIONS (6)
  - Balance disorder [Unknown]
  - Muscular weakness [Unknown]
  - Coordination abnormal [Unknown]
  - Mastication disorder [Unknown]
  - Cough [Unknown]
  - Speech disorder [Unknown]

NARRATIVE: CASE EVENT DATE: 20240601
